FAERS Safety Report 8874351 (Version 2)
Quarter: 2012Q4

REPORT INFORMATION
  Report Type: 
  Country: US (occurrence: US)
  Receive Date: 20121030
  Receipt Date: 20121116
  Transmission Date: 20130627
  Serious: Yes (Hospitalization, Other)
  Sender: FDA-Public Use
  Company Number: US-ALLERGAN-1214411US

PATIENT
  Age: 70 Year
  Sex: Male

DRUGS (10)
  1. LUMIGAN� 0.01% [Suspect]
     Indication: GLAUCOMA
     Dosage: 2 Gtt, qd
     Route: 047
     Dates: start: 201201, end: 201205
  2. LUMIGAN� 0.01% [Suspect]
     Indication: INCREASED INTRAOCULAR PRESSURE
  3. AZOPT [Suspect]
     Indication: GLAUCOMA
     Dosage: 2 Gtt, UNK
     Route: 047
     Dates: start: 201202, end: 201205
  4. AZOPT [Suspect]
     Indication: INCREASED INTRAOCULAR PRESSURE
  5. OCUPRESS [Suspect]
     Indication: GLAUCOMA
     Dosage: 2 Gtt, UNK
     Route: 047
     Dates: start: 201202, end: 201205
  6. OCUPRESS [Suspect]
     Indication: INCREASED INTRAOCULAR PRESSURE
  7. NORVASC [Concomitant]
     Indication: HYPERTENSION
  8. TEKTURNA [Concomitant]
     Indication: HYPERTENSION
  9. ACIPHEX [Concomitant]
     Indication: GASTRIC ACID INCREASED
     Dosage: UNK
     Route: 048
  10. BLOOD PRESSURE MEDICATION NOS [Concomitant]
     Indication: HYPERTENSION
     Dosage: UNK

REACTIONS (10)
  - Oedema peripheral [Not Recovered/Not Resolved]
  - Joint swelling [Recovered/Resolved]
  - Joint swelling [Recovered/Resolved]
  - Pain in extremity [Not Recovered/Not Resolved]
  - Arthralgia [Recovered/Resolved]
  - Arthralgia [Recovered/Resolved]
  - Bedridden [Recovering/Resolving]
  - Arthritis [Unknown]
  - Poisoning [Unknown]
  - Therapeutic response decreased [Unknown]
